FAERS Safety Report 22171540 (Version 2)
Quarter: 2023Q2

REPORT INFORMATION
  Report Type: Report from Study
  Country: IE (occurrence: IE)
  Receive Date: 20230404
  Receipt Date: 20230418
  Transmission Date: 20230722
  Serious: Yes (Other)
  Sender: FDA-Public Use
  Company Number: IE-002147023-NVSC2023IE074209

PATIENT
  Sex: Male

DRUGS (2)
  1. KESIMPTA [Suspect]
     Active Substance: OFATUMUMAB
     Indication: Relapsing-remitting multiple sclerosis
     Dosage: 20 MG X 3 THEN MONTHLY
     Route: 058
     Dates: start: 20230316
  2. KESIMPTA [Suspect]
     Active Substance: OFATUMUMAB
     Dosage: 20 MG, QMO
     Route: 058

REACTIONS (4)
  - Chest discomfort [Unknown]
  - Condition aggravated [Unknown]
  - Blood cholesterol increased [Unknown]
  - Hypertension [Unknown]

NARRATIVE: CASE EVENT DATE: 20230401
